FAERS Safety Report 14096836 (Version 1)
Quarter: 2017Q4

REPORT INFORMATION
  Report Type: Spontaneous
  Country: US (occurrence: US)
  Receive Date: 20171017
  Receipt Date: 20171017
  Transmission Date: 20180321
  Serious: No
  Sender: FDA-Public Use
  Company Number: US-PFIZER INC-2017442914

PATIENT
  Age: 57 Year
  Sex: Female

DRUGS (4)
  1. IBUPROFEN. [Suspect]
     Active Substance: IBUPROFEN
     Indication: RHEUMATOID ARTHRITIS
     Dosage: FOUR IBUPROFEN EVERY EIGHT HOURS
  2. IBUPROFEN. [Suspect]
     Active Substance: IBUPROFEN
     Dosage: SEVEN EVERY FIVE OR SIX HOURS
  3. IBUPROFEN. [Suspect]
     Active Substance: IBUPROFEN
     Dosage: FOUR EVERY SIX HOURS
  4. ENBREL [Concomitant]
     Active Substance: ETANERCEPT
     Indication: RHEUMATOID ARTHRITIS
     Dosage: 50 MG, QWK
     Dates: start: 2017

REACTIONS (2)
  - Drug ineffective [Unknown]
  - Intentional product use issue [Unknown]
